FAERS Safety Report 12782930 (Version 3)
Quarter: 2018Q3

REPORT INFORMATION
  Report Type: Spontaneous
  Country: US (occurrence: US)
  Receive Date: 20160927
  Receipt Date: 20180810
  Transmission Date: 20181010
  Serious: No
  Sender: FDA-Public Use
  Company Number: US-PFIZER INC-2016447277

PATIENT
  Age: 65 Year
  Sex: Female
  Weight: 101.6 kg

DRUGS (4)
  1. IBRANCE [Suspect]
     Active Substance: PALBOCICLIB
     Indication: BREAST CANCER METASTATIC
     Dosage: 125 MG (1 CAPSULE), DAILY, CYCLIC (21DAYS ON/ 7 DAYS OFF)
     Route: 048
     Dates: start: 20160913
  2. FASLODEX [Concomitant]
     Active Substance: FULVESTRANT
     Dosage: UNK
  3. ZOFRAN [Concomitant]
     Active Substance: ONDANSETRON HYDROCHLORIDE
     Indication: NAUSEA
     Dosage: 8 MG, AS NEEDED [EVERY 6 HOURS]
     Route: 048
     Dates: start: 2013
  4. LETROZOLE. [Concomitant]
     Active Substance: LETROZOLE
     Indication: BREAST CANCER METASTATIC
     Dosage: 2.5 MG, DAILY [WITH OR WITHOUT FOOD]
     Route: 048

REACTIONS (10)
  - Constipation [Recovered/Resolved]
  - Confusional state [Unknown]
  - Nausea [Recovered/Resolved]
  - Oral mucosal blistering [Recovered/Resolved]
  - Feeling abnormal [Unknown]
  - Fatigue [Unknown]
  - Gait disturbance [Unknown]
  - Hypoacusis [Unknown]
  - Decreased appetite [Unknown]
  - Drug dose omission [Unknown]
